FAERS Safety Report 10197682 (Version 3)
Quarter: 2015Q2

REPORT INFORMATION
  Report Type: Report from Study
  Country: US (occurrence: US)
  Receive Date: 20140527
  Receipt Date: 20150623
  Transmission Date: 20150821
  Serious: Yes (Hospitalization)
  Sender: FDA-Public Use
  Company Number: US-GILEAD-2014-0103252

PATIENT
  Age: 55 Year
  Sex: Female

DRUGS (5)
  1. REVATIO [Concomitant]
     Active Substance: SILDENAFIL CITRATE
  2. COUMADIN [Concomitant]
     Active Substance: WARFARIN SODIUM
     Indication: ATRIAL FIBRILLATION
     Dosage: UNK
  3. OXYGEN. [Concomitant]
     Active Substance: OXYGEN
  4. VIAGRA [Concomitant]
     Active Substance: SILDENAFIL CITRATE
  5. AMBRISENTAN [Suspect]
     Active Substance: AMBRISENTAN
     Indication: PULMONARY ARTERIAL HYPERTENSION
     Dosage: 5 MG, QD
     Route: 065
     Dates: start: 20130828

REACTIONS (2)
  - Pleural effusion [Unknown]
  - Unevaluable event [Unknown]
